FAERS Safety Report 17392181 (Version 2)
Quarter: 2020Q1

REPORT INFORMATION
  Report Type: Report from Study
  Country: GB (occurrence: GB)
  Receive Date: 20200207
  Receipt Date: 20200227
  Transmission Date: 20200409
  Serious: Yes (Hospitalization, Other)
  Sender: FDA-Public Use
  Company Number: GB-VERTEX PHARMACEUTICALS-2020-001893

PATIENT
  Age: 28 Year
  Sex: Male
  Weight: 57 kg

DRUGS (5)
  1. ELEXACAFTOR/TEZACAFTOR/IVACAFTOR [Suspect]
     Active Substance: ELEXACAFTOR\IVACAFTOR\TEZACAFTOR
     Indication: CYSTIC FIBROSIS
     Dosage: 2 TABLETS, QD
     Route: 048
     Dates: start: 20191115
  2. SEPTRAN [SULFAMETHOXAZOLE;TRIMETHOPRIM] [Suspect]
     Active Substance: SULFAMETHOXAZOLE\TRIMETHOPRIM
     Route: 065
  3. LEVEMIR [Concomitant]
     Active Substance: INSULIN DETEMIR
     Dosage: DOSE REDUCED
     Route: 058
  4. KALYDECO [Suspect]
     Active Substance: IVACAFTOR
     Indication: CYSTIC FIBROSIS
     Dosage: 150 MG, QD
     Route: 048
     Dates: start: 20191115
  5. CALCIUM RESONIUM [Concomitant]
     Indication: BLOOD POTASSIUM INCREASED
     Dosage: 15 GRAM
     Route: 048
     Dates: start: 20200126

REACTIONS (4)
  - Blood glucose fluctuation [Recovering/Resolving]
  - Hyperkalaemia [Recovering/Resolving]
  - Hypoglycaemic seizure [Unknown]
  - Metabolic acidosis [Recovering/Resolving]

NARRATIVE: CASE EVENT DATE: 20200102
